FAERS Safety Report 23303970 (Version 2)
Quarter: 2024Q1

REPORT INFORMATION
  Report Type: Spontaneous
  Country: US (occurrence: US)
  Receive Date: 20231215
  Receipt Date: 20240209
  Transmission Date: 20240410
  Serious: Yes (Other)
  Sender: FDA-Public Use
  Company Number: US-PFIZER INC-202300434878

PATIENT
  Age: 80 Year
  Sex: Female

DRUGS (1)
  1. XELJANZ [Suspect]
     Active Substance: TOFACITINIB CITRATE
     Dosage: 5 MG
     Dates: start: 202311

REACTIONS (8)
  - Parkinson^s disease [Unknown]
  - Dysphonia [Unknown]
  - Productive cough [Unknown]
  - Dysphagia [Unknown]
  - Inflammation [Recovering/Resolving]
  - Bone pain [Unknown]
  - Pain in extremity [Unknown]
  - Arthralgia [Unknown]
